FAERS Safety Report 4588837-X (Version None)
Quarter: 2005Q1

REPORT INFORMATION
  Report Type: 
  Country: None (occurrence: None)
  Receive Date: 20050222
  Receipt Date: 20040903
  Transmission Date: 20050727
  Serious: Yes (Other)
  Sender: FDA-Public Use
  Company Number: 42429

PATIENT
  Sex: Female

DRUGS (1)
  1. ADVAIR DISKUS 100/50 [Suspect]
     Indication: DRUG USE FOR UNKNOWN INDICATION
     Route: 055

REACTIONS (14)
  - ANXIETY [None]
  - ASTHMA [None]
  - DENTAL CARIES [None]
  - DEPRESSION [None]
  - DISABILITY [None]
  - EMOTIONAL DISTRESS [None]
  - FEAR [None]
  - IMMUNE SYSTEM DISORDER [None]
  - INFECTION [None]
  - INJURY [None]
  - PAIN [None]
  - PERFORMANCE STATUS DECREASED [None]
  - TOOTH EXTRACTION [None]
  - TOOTH INJURY [None]
